FAERS Safety Report 6117500-9 (Version None)
Quarter: 2009Q1

REPORT INFORMATION
  Report Type: 
  Country: None (occurrence: None)
  Receive Date: 20090314
  Receipt Date: 20090119
  Transmission Date: 20090719
  Serious: No
  Sender: FDA-Public Use
  Company Number: US-ABBOTT-09P-163-0498659-00

PATIENT
  Sex: Female

DRUGS (1)
  1. HUMIRA [Suspect]
     Indication: RHEUMATOID ARTHRITIS
     Dates: start: 20081216, end: 20081218

REACTIONS (4)
  - COUGH [None]
  - HYPERSENSITIVITY [None]
  - SPUTUM DISCOLOURED [None]
  - VIRAL INFECTION [None]
